FAERS Safety Report 4459768-0 (Version None)
Quarter: 2004Q3

REPORT INFORMATION
  Report Type: 
  Country: None (occurrence: None)
  Receive Date: 20040928
  Receipt Date: 20040226
  Transmission Date: 20050211
  Serious: Yes (Other)
  Sender: FDA-Public Use
  Company Number: US-BRISTOL-MYERS SQUIBB COMPANY-12518494

PATIENT
  Age: 36 Year
  Sex: Female

DRUGS (5)
  1. KENALOG-40 [Suspect]
     Indication: ASTHMA
     Route: 030
  2. PROZAC [Concomitant]
     Indication: DEPRESSION
  3. SERZONE [Concomitant]
     Indication: DEPRESSION
  4. SEROQUEL [Concomitant]
     Indication: DEPRESSION
  5. ATIVAN [Concomitant]
     Indication: DEPRESSION

REACTIONS (2)
  - ACCIDENTAL OVERDOSE [None]
  - DEPRESSION [None]
